FAERS Safety Report 22004690 (Version 1)
Quarter: 2023Q1

REPORT INFORMATION
  Report Type: Spontaneous
  Country: US (occurrence: US)
  Receive Date: 20230217
  Receipt Date: 20230217
  Transmission Date: 20230418
  Serious: Yes (Disabling)
  Sender: FDA-Public Use
  Company Number: US-009507513-2302USA003792

PATIENT
  Age: 42 Year
  Sex: Male

DRUGS (2)
  1. STROMECTOL [Suspect]
     Active Substance: IVERMECTIN
     Indication: Large granular lymphocytosis
     Dosage: ONCE A WEEK, SOMETIMES BI-WEEKLY
     Route: 048
  2. ZARXIO [Concomitant]
     Active Substance: FILGRASTIM-SNDZ
     Indication: Large granular lymphocytosis
     Dosage: 480 MICROGRAM

REACTIONS (10)
  - Cyst [Unknown]
  - Anal haemorrhage [Unknown]
  - Staphylococcal infection [Unknown]
  - Ill-defined disorder [Unknown]
  - Weight decreased [Recovering/Resolving]
  - Immune system disorder [Unknown]
  - Full blood count decreased [Unknown]
  - Platelet count decreased [Unknown]
  - Drug effective for unapproved indication [Unknown]
  - Product use issue [Unknown]
